FAERS Safety Report 5352603-8 (Version None)
Quarter: 2007Q2

REPORT INFORMATION
  Report Type: 
  Country: None (occurrence: None)
  Receive Date: 20070611
  Receipt Date: 20070529
  Transmission Date: 20071010
  Serious: Yes (Other)
  Sender: FDA-Public Use
  Company Number: GB-ROCHE-442478

PATIENT
  Sex: Female
  Weight: 3.9 kg

DRUGS (3)
  1. ROACCUTANE [Suspect]
     Indication: ACNE
     Dates: start: 20051213, end: 20051220
  2. ROACCUTANE [Suspect]
     Dates: start: 20051101, end: 20051213
  3. MICROGYNON [Concomitant]
     Indication: CONTRACEPTION
     Dates: end: 20060101

REACTIONS (2)
  - NO ADVERSE EFFECT [None]
  - NORMAL NEWBORN [None]
